FAERS Safety Report 5169865-2 (Version None)
Quarter: 2006Q4

REPORT INFORMATION
  Report Type: 
  Country: None (occurrence: None)
  Receive Date: 20061204
  Receipt Date: 20061120
  Transmission Date: 20070319
  Serious: Yes (Other)
  Sender: FDA-Public Use
  Company Number: US-2006-020164

PATIENT
  Age: 61 Year
  Sex: Female

DRUGS (1)
  1. MAGNEVIST [Suspect]
     Indication: ANGIOGRAM
     Dosage: 50 ML, 1 DOSE, INTRAVENOUS
     Route: 042
     Dates: start: 20060106, end: 20060106

REACTIONS (1)
  - NEPHROGENIC FIBROSING DERMOPATHY [None]
